FAERS Safety Report 25662938 (Version 1)
Quarter: 2025Q3

REPORT INFORMATION
  Report Type: Spontaneous
  Country: US (occurrence: US)
  Receive Date: 20250811
  Receipt Date: 20250811
  Transmission Date: 20251020
  Serious: No
  Sender: AJANTA PHARMA USA INC
  Company Number: US-AJANTA-2025AJA00104

PATIENT
  Age: 49 Year
  Sex: Female
  Weight: 120 kg

DRUGS (1)
  1. DULOXETINE [Suspect]
     Active Substance: DULOXETINE
     Indication: Burning sensation
     Dates: start: 20250721, end: 202507

REACTIONS (6)
  - Headache [Unknown]
  - Constipation [Unknown]
  - Nausea [Unknown]
  - Decreased appetite [Unknown]
  - Product prescribing error [Unknown]
  - Drug ineffective for unapproved indication [Unknown]

NARRATIVE: CASE EVENT DATE: 20250701
